FAERS Safety Report 8131250-9 (Version None)
Quarter: 2012Q1

REPORT INFORMATION
  Report Type: 
  Country: None (occurrence: None)
  Receive Date: 20120207
  Receipt Date: 20120124
  Transmission Date: 20120608
  Serious: No
  Sender: FDA-Public Use
  Company Number: SPI201200016

PATIENT
  Age: 48 Year
  Sex: Female
  Weight: 59.8748 kg

DRUGS (10)
  1. OMEPRAZOLE [Concomitant]
  2. VIVELLE (ESTRADIOL) PATCH [Concomitant]
  3. TRAZODONE HCL [Concomitant]
  4. AMITIZA [Suspect]
     Indication: CONSTIPATION
     Dosage: 24 MCG, QD, ORAL   24 MCG, BID, ORAL
     Route: 048
     Dates: start: 20120119, end: 20120122
  5. AMITIZA [Suspect]
     Indication: CONSTIPATION
     Dosage: 24 MCG, QD, ORAL   24 MCG, BID, ORAL
     Route: 048
     Dates: start: 20120122
  6. OXYCONTIN [Concomitant]
  7. OXYCODONE HCL [Concomitant]
  8. CLONAZEPAM [Concomitant]
  9. COLACE (DOCUSATE SODIUM) [Concomitant]
  10. VITAMIN B12 (COBAMAMIDE) [Concomitant]

REACTIONS (8)
  - HEADACHE [None]
  - DYSPHONIA [None]
  - MUSCULAR WEAKNESS [None]
  - DRUG INEFFECTIVE [None]
  - RHINORRHOEA [None]
  - MYALGIA [None]
  - MUSCULOSKELETAL CHEST PAIN [None]
  - DRY THROAT [None]
